FAERS Safety Report 4467982-3 (Version None)
Quarter: 2004Q4

REPORT INFORMATION
  Report Type: 
  Country: None (occurrence: None)
  Receive Date: 20041001
  Receipt Date: 20040927
  Transmission Date: 20050328
  Serious: Yes (Hospitalization)
  Sender: FDA-Public Use
  Company Number: NLWYE065624SEP04

PATIENT
  Age: 71 Year
  Sex: Female

DRUGS (1)
  1. SIROLIMUS (SIROLIMUS, UNSPEC, 0) [Suspect]
     Route: 048
     Dates: end: 20040901

REACTIONS (5)
  - BLOOD LACTATE DEHYDROGENASE INCREASED [None]
  - IMMUNOSUPPRESSANT DRUG LEVEL INCREASED [None]
  - MALAISE [None]
  - PLATELET COUNT DECREASED [None]
  - PYREXIA [None]
